FAERS Safety Report 5026782-6 (Version None)
Quarter: 2006Q2

REPORT INFORMATION
  Report Type: 
  Country: None (occurrence: None)
  Receive Date: 20060609
  Receipt Date: 20060531
  Transmission Date: 20061013
  Serious: Yes (Life-Threatening, Hospitalization, Other)
  Sender: FDA-Public Use
  Company Number: GXKR2006BR03139

PATIENT
  Age: 19 Year
  Sex: Male
  Weight: 55 kg

DRUGS (4)
  1. DOXYCYCLINE [Suspect]
     Indication: GONORRHOEA
     Dosage: 100 MG, BID, ORAL
     Route: 048
  2. GLITISOL(THIAMPHENICOL) [Suspect]
     Indication: GONORRHOEA
     Dosage: 500 MG, TID, ORAL
     Route: 048
  3. AZITHROMYCIN [Concomitant]
  4. CIPROFLOXACIN [Concomitant]

REACTIONS (2)
  - MYOCARDIAL INFARCTION [None]
  - PERICARDITIS [None]
